FAERS Safety Report 5189026-0 (Version None)
Quarter: 2006Q4

REPORT INFORMATION
  Report Type: 
  Country: None (occurrence: None)
  Receive Date: 20061215
  Receipt Date: 20061208
  Transmission Date: 20070319
  Serious: Yes (Other)
  Sender: FDA-Public Use
  Company Number: 2006149987

PATIENT
  Sex: Male

DRUGS (1)
  1. ACTIFED COLD + ALLERGY (PSEUDOEPHEDRINE, TRIPROLIDINE) [Suspect]
     Dosage: ORAL
     Route: 048

REACTIONS (1)
  - LARYNGEAL CANCER [None]
